FAERS Safety Report 9507553 (Version 1)
Quarter: 2013Q3

REPORT INFORMATION
  Report Type: Spontaneous
  Country: US (occurrence: None)
  Receive Date: 20130906
  Receipt Date: 20130906
  Transmission Date: 20140515
  Serious: Yes (Disabling)
  Sender: FDA-Public Use
  Company Number: None

PATIENT
  Age: 66 Year
  Sex: Male
  Weight: 74.39 kg

DRUGS (1)
  1. ATORVASTATIN [Suspect]
     Indication: BLOOD CHOLESTEROL INCREASED
     Dosage: 1 PILL  AT BEDTIME  TAKEN BY MOUTH
     Route: 048
     Dates: start: 20130628, end: 20130807

REACTIONS (3)
  - Arthralgia [None]
  - Gait disturbance [None]
  - Sleep disorder [None]
